FAERS Safety Report 5930496-5 (Version None)
Quarter: 2008Q4

REPORT INFORMATION
  Report Type: 
  Country: None (occurrence: None)
  Receive Date: 20081026
  Receipt Date: 20081015
  Transmission Date: 20090506
  Serious: Yes (Disabling, Other)
  Sender: FDA-Public Use
  Company Number: PHHY2008DE18628

PATIENT
  Sex: Male

DRUGS (2)
  1. IMMUNOSPORIN [Suspect]
     Indication: VASCULITIS
     Dosage: 200 MG/D
     Route: 048
     Dates: start: 20070622, end: 20080722
  2. IMMUNOSPORIN [Suspect]
     Indication: COLLAGEN DISORDER

REACTIONS (3)
  - CONGESTIVE CARDIOMYOPATHY [None]
  - EJECTION FRACTION DECREASED [None]
  - MYOCARDIAL INFARCTION [None]
